FAERS Safety Report 5843864-7 (Version None)
Quarter: 2008Q3

REPORT INFORMATION
  Report Type: 
  Country: None (occurrence: None)
  Receive Date: 20080813
  Receipt Date: 20080806
  Transmission Date: 20090109
  Serious: Yes (Other)
  Sender: FDA-Public Use
  Company Number: PHHY2008JP05108

PATIENT
  Sex: Male
  Weight: 56 kg

DRUGS (2)
  1. PABRON NASAL INFECTION CAPSULE [Suspect]
     Indication: NASOPHARYNGITIS
     Dosage: 1 DF/DAY
     Route: 048
     Dates: start: 20080319, end: 20080319
  2. PABRON SC [Suspect]
     Indication: NASOPHARYNGITIS
     Dosage: 1 DF/DAY
     Route: 048
     Dates: start: 20080320, end: 20080320

REACTIONS (10)
  - BLOOD LACTATE DEHYDROGENASE INCREASED [None]
  - CONJUNCTIVAL HYPERAEMIA [None]
  - EOSINOPHILIA [None]
  - ERYTHEMA [None]
  - ERYTHEMA MULTIFORME [None]
  - LYMPHOCYTE COUNT DECREASED [None]
  - PRURITUS [None]
  - PYREXIA [None]
  - RASH [None]
  - SKIN EXFOLIATION [None]
